FAERS Safety Report 9518969 (Version 4)
Quarter: 2014Q1

REPORT INFORMATION
  Report Type: Report from Study
  Country: US (occurrence: US)
  Receive Date: 20130912
  Receipt Date: 20140212
  Transmission Date: 20141002
  Serious: Yes (Hospitalization, Other)
  Sender: FDA-Public Use
  Company Number: US-IPSEN BIOPHARMACEUTICALS, INC.-2013-2489

PATIENT
  Age: 49 Year
  Sex: Female
  Weight: 107 kg

DRUGS (16)
  1. SOMATULINE DEPOT INJECTION (60MG) [Suspect]
     Indication: ACROMEGALY
     Dosage: 60 MG
     Route: 058
     Dates: start: 20120822, end: 201308
  2. BACTRIM [Suspect]
     Indication: LOCALISED INFECTION
     Dosage: NOT REPORTED
  3. PEPCID [Suspect]
     Indication: HYPERSENSITIVITY
     Dosage: NOT REPORTED
     Route: 048
     Dates: start: 20130605, end: 20130605
  4. PEPCID [Suspect]
     Dosage: NOT REPORTED
     Route: 042
     Dates: start: 20130608, end: 20130608
  5. SODIUM BASED MEDICATIONS [Concomitant]
     Indication: PRODUCT USED FOR UNKNOWN INDICATION
     Dosage: NOT REPORTED
     Route: 065
  6. COREG CR [Concomitant]
     Indication: PRODUCT USED FOR UNKNOWN INDICATION
     Route: 065
  7. LEVOTHYROXINE [Concomitant]
     Indication: PRODUCT USED FOR UNKNOWN INDICATION
     Route: 065
  8. NORVASC [Concomitant]
     Indication: PRODUCT USED FOR UNKNOWN INDICATION
     Route: 065
  9. FOLIC ACID [Concomitant]
     Indication: PRODUCT USED FOR UNKNOWN INDICATION
     Route: 065
  10. BENICAR HCT [Concomitant]
     Indication: PRODUCT USED FOR UNKNOWN INDICATION
     Dosage: 40/12.5 MG
     Route: 065
  11. PREDNISONE [Concomitant]
     Indication: PRODUCT USED FOR UNKNOWN INDICATION
     Route: 065
  12. CALCIUM [Concomitant]
     Indication: PRODUCT USED FOR UNKNOWN INDICATION
     Dosage: NOT REPORTED
     Route: 065
  13. MAGNESIUM [Concomitant]
     Indication: PRODUCT USED FOR UNKNOWN INDICATION
     Dosage: NOT REPORTED
     Route: 065
  14. MULTIVITAMIN [Concomitant]
     Indication: PRODUCT USED FOR UNKNOWN INDICATION
     Dosage: NOT REPORTED
     Route: 065
  15. VITAMIN D3 [Concomitant]
     Indication: PRODUCT USED FOR UNKNOWN INDICATION
     Route: 065
  16. METHOTREXATE [Concomitant]
     Indication: PRODUCT USED FOR UNKNOWN INDICATION
     Dosage: 2.5 MG 3 TIMES EVERY FRIDAY
     Route: 065

REACTIONS (15)
  - Drug hypersensitivity [Recovered/Resolved]
  - Tremor [Recovered/Resolved]
  - Vision blurred [Recovered/Resolved]
  - Chills [Recovered/Resolved]
  - Feeling hot [Recovered/Resolved]
  - Heart rate increased [Not Recovered/Not Resolved]
  - Chest discomfort [Recovered/Resolved]
  - Gallbladder pain [Recovered/Resolved]
  - Blood glucose increased [Unknown]
  - Dizziness [Recovered/Resolved]
  - Headache [Recovered/Resolved]
  - Erythema [Recovered/Resolved]
  - Localised infection [Unknown]
  - Skin depigmentation [Unknown]
  - Injection site pain [Unknown]
